FAERS Safety Report 17198520 (Version 1)
Quarter: 2019Q4

REPORT INFORMATION
  Report Type: Report from Study
  Country: US (occurrence: US)
  Receive Date: 20191225
  Receipt Date: 20191225
  Transmission Date: 20200122
  Serious: Yes (Death, Life-Threatening, Other)
  Sender: FDA-Public Use
  Company Number: US-UCBSA-2019054867

PATIENT

DRUGS (2)
  1. LEVETIRACETAM. [Suspect]
     Active Substance: LEVETIRACETAM
     Indication: STATUS EPILEPTICUS
     Dosage: 50 MILLIGRAM/KILOGRAM MAXIMUM, 4500 MG),
  2. LEVETIRACETAM. [Suspect]
     Active Substance: LEVETIRACETAM
     Indication: OFF LABEL USE

REACTIONS (9)
  - Arrhythmia [Unknown]
  - Respiratory depression [Unknown]
  - Hypotension [Unknown]
  - Endotracheal intubation [Unknown]
  - Hepatic enzyme increased [Unknown]
  - Death [Fatal]
  - Depressed level of consciousness [Unknown]
  - Seizure [Unknown]
  - Off label use [Unknown]
